FAERS Safety Report 22098961 (Version 1)
Quarter: 2023Q1

REPORT INFORMATION
  Report Type: Report from Study
  Country: PH (occurrence: PH)
  Receive Date: 20230315
  Receipt Date: 20230315
  Transmission Date: 20230417
  Serious: Yes (Death, Other)
  Sender: FDA-Public Use
  Company Number: PH-JNJFOC-20230301917

PATIENT
  Sex: Male

DRUGS (1)
  1. BENDAMUSTINE HYDROCHLORIDE [Suspect]
     Active Substance: BENDAMUSTINE HYDROCHLORIDE
     Indication: T-cell lymphoma
     Route: 042

REACTIONS (5)
  - Hallucination [Fatal]
  - Asthenia [Fatal]
  - Urinary incontinence [Fatal]
  - Dysarthria [Fatal]
  - Appetite disorder [Fatal]
